FAERS Safety Report 8779357 (Version 1)
Quarter: 2012Q4

REPORT INFORMATION
  Report Type: 
  Country: US (occurrence: US)
  Receive Date: 20120911
  Receipt Date: 20120911
  Transmission Date: 20130627
  Serious: Yes (Disabling)
  Sender: FDA-Public Use
  Company Number: US-TEVA-357759USA

PATIENT
  Sex: Female

DRUGS (3)
  1. VENLAFAXINE [Suspect]
  2. LEXAPRO [Concomitant]
  3. ESCITALOPRAM [Concomitant]

REACTIONS (4)
  - Impaired work ability [Unknown]
  - Depression [Unknown]
  - Anxiety [Unknown]
  - Therapeutic response unexpected with drug substitution [Unknown]
